FAERS Safety Report 8263237-X (Version None)
Quarter: 2012Q2

REPORT INFORMATION
  Report Type: 
  Country: None (occurrence: None)
  Receive Date: 20120405
  Receipt Date: 20120326
  Transmission Date: 20120825
  Serious: Yes (Other)
  Sender: FDA-Public Use
  Company Number: DE-TEVA-329760GER

PATIENT
  Age: 58 Year
  Sex: Female

DRUGS (2)
  1. CIPROFLOXACIN-RATIOPHARM 250 MG [Suspect]
     Indication: NASOPHARYNGITIS
     Dosage: 250 MILLIGRAM;
     Dates: start: 20120301
  2. TOPOTECAN [Concomitant]
     Indication: CHEMOTHERAPY

REACTIONS (3)
  - COLOUR BLINDNESS [None]
  - VITH NERVE PARESIS [None]
  - DIPLOPIA [None]
